FAERS Safety Report 8178849-1 (Version None)
Quarter: 2012Q1

REPORT INFORMATION
  Report Type: 
  Country: None (occurrence: None)
  Receive Date: 20120302
  Receipt Date: 20120220
  Transmission Date: 20120608
  Serious: Yes (Hospitalization)
  Sender: FDA-Public Use
  Company Number: FR-BRISTOL-MYERS SQUIBB COMPANY-16414245

PATIENT
  Age: 75 Year
  Sex: Male

DRUGS (11)
  1. OXAZEPAM [Concomitant]
     Dosage: 10MG IS THE STRENGTH. 1DF=3 TAB
     Route: 048
  2. RISPERDAL [Concomitant]
     Dosage: SCORED FILM-COATED TABLET
     Route: 048
  3. BISOPROLOL FUMARATE [Concomitant]
     Dosage: SCORED FILM-COATED TABLET
     Route: 048
  4. VITAMIN B1 TAB [Concomitant]
     Dosage: 1DF=3 UNIT NOS
     Route: 048
  5. ALDACTONE [Concomitant]
     Dosage: SCORED FILM-COATED TABLET
     Route: 048
  6. LASIX [Concomitant]
     Dosage: 1DF=0.25 UNIT NOS
     Route: 048
  7. COUMADIN [Suspect]
     Indication: ATRIAL FIBRILLATION
     Dosage: DOSE REDUCED TO 2 MG.
     Route: 048
  8. VITAMIN B6 [Concomitant]
     Dosage: 1DF=3 UNIT NOS
     Route: 048
  9. POTASSIUM CHLORIDE [Concomitant]
     Dosage: 1DF=3 CAPSULES
     Route: 048
  10. ALFUZOSIN HCL [Concomitant]
     Dosage: LONG ACTING TABLET
     Route: 048
  11. NEXIUM [Concomitant]
     Dosage: ENTERIC COATED TABLET
     Route: 048

REACTIONS (2)
  - ANAEMIA [None]
  - INTERNATIONAL NORMALISED RATIO INCREASED [None]
